FAERS Safety Report 7245768-4 (Version None)
Quarter: 2011Q1

REPORT INFORMATION
  Report Type: 
  Country: None (occurrence: None)
  Receive Date: 20110126
  Receipt Date: 20110121
  Transmission Date: 20110831
  Serious: Yes (Other)
  Sender: FDA-Public Use
  Company Number: US-PFIZER INC-2011016289

PATIENT
  Sex: Female

DRUGS (1)
  1. ADVIL [Suspect]

REACTIONS (1)
  - GASTRIC HAEMORRHAGE [None]
